FAERS Safety Report 7839346 (Version 2)
Quarter: 2016Q1

REPORT INFORMATION
  Report Type: Spontaneous
  Country: FR (occurrence: FR)
  Receive Date: 20110303
  Receipt Date: 20160125
  Transmission Date: 20160526
  Serious: Yes (Other)
  Sender: FDA-Public Use
  Company Number: FR-BRISTOL-MYERS SQUIBB COMPANY-15532294

PATIENT
  Age: 33 Year
  Sex: Female
  Weight: 56 kg

DRUGS (1)
  1. BARACLUDE [Suspect]
     Active Substance: ENTECAVIR
     Indication: HEPATITIS B
     Dosage: 1 MG, QD
     Route: 048

REACTIONS (4)
  - Gastroenteritis [Unknown]
  - Pregnancy on oral contraceptive [Recovered/Resolved]
  - Malabsorption [Unknown]
  - Abortion induced [Unknown]

NARRATIVE: CASE EVENT DATE: 20110214
